FAERS Safety Report 10884547 (Version 1)
Quarter: 2015Q1

REPORT INFORMATION
  Report Type: Spontaneous
  Country: FR (occurrence: None)
  Receive Date: 20150227
  Receipt Date: 20150227
  Transmission Date: 20150721
  Serious: Yes (Life-Threatening, Other)
  Sender: FDA-Public Use
  Company Number: 2752698

PATIENT
  Age: 68 Year
  Sex: Female

DRUGS (15)
  1. PROPOFOL FRESENIUS [Suspect]
     Active Substance: PROPOFOL
     Indication: INDUCTION OF ANAESTHESIA
     Dates: start: 20141223, end: 20141223
  2. LASILIX /00032601/) [Concomitant]
  3. SYMBICORT [Concomitant]
     Active Substance: BUDESONIDE\FORMOTEROL FUMARATE DIHYDRATE
  4. PROPRANOLOL [Concomitant]
     Active Substance: PROPRANOLOL\PROPRANOLOL HYDROCHLORIDE
  5. VICTOZA [Concomitant]
     Active Substance: LIRAGLUTIDE
  6. ATRACURIUM BESILATE [Suspect]
     Active Substance: ATRACURIUM BESYLATE
     Indication: MAINTENANCE OF ANAESTHESIA
     Dates: start: 20141223, end: 20141223
  7. SPIRIVA [Concomitant]
     Active Substance: TIOTROPIUM BROMIDE MONOHYDRATE
  8. SUFENTANIL [Suspect]
     Active Substance: SUFENTANIL
     Indication: MAINTENANCE OF ANAESTHESIA
     Dates: start: 20141223, end: 20141223
  9. DEXAMETHASONE. [Suspect]
     Active Substance: DEXAMETHASONE
     Indication: MAINTENANCE OF ANAESTHESIA
     Dates: start: 20141223, end: 20141223
  10. KETAMINE PANPHARMA [Suspect]
     Active Substance: KETAMINE
     Indication: INDUCTION OF ANAESTHESIA
     Dates: start: 20141223, end: 20141223
  11. CELOCURINE [Suspect]
     Active Substance: SUCCINYLCHOLINE CHLORIDE
     Indication: INDUCTION OF ANAESTHESIA
     Dates: start: 20141223, end: 20141223
  12. ETOMIDATE. [Suspect]
     Active Substance: ETOMIDATE
     Indication: INDUCTION OF ANAESTHESIA
     Dates: start: 20141223, end: 20141223
  13. METFORMINE [Concomitant]
     Active Substance: METFORMIN HYDROCHLORIDE
  14. LEVOTHYROX [Concomitant]
     Active Substance: LEVOTHYROXINE
  15. ALPRAZOLAM. [Concomitant]
     Active Substance: ALPRAZOLAM

REACTIONS (5)
  - Bradycardia [None]
  - Anaphylactic shock [None]
  - Bronchospasm [None]
  - Heart injury [None]
  - Hypotension [None]

NARRATIVE: CASE EVENT DATE: 20141223
